FAERS Safety Report 8881181 (Version 2)
Quarter: 2013Q2

REPORT INFORMATION
  Report Type: Report from Study
  Country: MX (occurrence: MX)
  Receive Date: 20121031
  Receipt Date: 20130515
  Transmission Date: 20140414
  Serious: Yes (Death)
  Sender: FDA-Public Use
  Company Number: PHHY2012MX098520

PATIENT
  Age: 80 Year
  Sex: Male

DRUGS (2)
  1. EXFORGE HCT [Suspect]
     Indication: HYPERTENSION
     Dosage: 1 DF (VALS 320 MG, AMLO 10 MG, HCTZ 25 MG), DAILY
     Route: 048
     Dates: start: 20120722
  2. GLIBENCLAMIDE [Concomitant]
     Indication: DIABETES MELLITUS
     Dosage: 1.5 DF, DAILY

REACTIONS (4)
  - Lung neoplasm malignant [Fatal]
  - Metastases to liver [Fatal]
  - Metastatic neoplasm [Fatal]
  - Acute respiratory failure [Fatal]
